FAERS Safety Report 5209745-7 (Version None)
Quarter: 2007Q1

REPORT INFORMATION
  Report Type: 
  Country: None (occurrence: None)
  Receive Date: 20070116
  Receipt Date: 20070108
  Transmission Date: 20070707
  Serious: Yes (Hospitalization)
  Sender: FDA-Public Use
  Company Number: US-ABBOTT-07P-163-0355206-00

PATIENT
  Sex: Male
  Weight: 81.266 kg

DRUGS (1)
  1. HUMIRA [Suspect]
     Indication: RHEUMATOID ARTHRITIS
     Route: 058
     Dates: start: 20021201, end: 20050825

REACTIONS (3)
  - CORONARY ARTERY OCCLUSION [None]
  - LIGAMENT RUPTURE [None]
  - LOCALISED INFECTION [None]
